FAERS Safety Report 18550666 (Version 2)
Quarter: 2020Q4

REPORT INFORMATION
  Report Type: Spontaneous
  Country: US (occurrence: US)
  Receive Date: 20201126
  Receipt Date: 20201230
  Transmission Date: 20210114
  Serious: Yes (Hospitalization)
  Sender: FDA-Public Use
  Company Number: US-PFIZER INC-2020465849

PATIENT
  Age: 55 Year
  Sex: Male

DRUGS (2)
  1. XELJANZ XR [Suspect]
     Active Substance: TOFACITINIB CITRATE
     Indication: RHEUMATOID ARTHRITIS
     Dosage: 11 MG, DAILY
     Route: 048
     Dates: start: 202010, end: 20201123
  2. MTX SUPPORT [Concomitant]
     Active Substance: CYANOCOBALAMIN\FOLIC ACID
     Dosage: UNK

REACTIONS (5)
  - Oropharyngeal pain [Recovered/Resolved]
  - Pneumonia [Unknown]
  - COVID-19 [Unknown]
  - Pyrexia [Recovered/Resolved]
  - Cough [Recovered/Resolved]
